FAERS Safety Report 5312211-1 (Version None)
Quarter: 2007Q2

REPORT INFORMATION
  Report Type: 
  Country: None (occurrence: None)
  Receive Date: 20070430
  Receipt Date: 20060808
  Transmission Date: 20071010
  Serious: No
  Sender: FDA-Public Use
  Company Number: 2006UW15864

PATIENT
  Age: 44 Year
  Sex: Female
  Weight: 127 kg

DRUGS (3)
  1. NEXIUM [Suspect]
     Route: 048
  2. PRILOSEC [Concomitant]
  3. IRON VITAMINS [Concomitant]

REACTIONS (2)
  - DRY MOUTH [None]
  - MEDICATION ERROR [None]
